FAERS Safety Report 8237255-1 (Version None)
Quarter: 2012Q1

REPORT INFORMATION
  Report Type: 
  Country: None (occurrence: None)
  Receive Date: 20120327
  Receipt Date: 20120327
  Transmission Date: 20120608
  Serious: No
  Sender: FDA-Public Use
  Company Number: None

PATIENT
  Age: 84 Year
  Sex: Female
  Weight: 59.4 kg

DRUGS (1)
  1. CAPECITABINE [Suspect]
     Indication: COLON CANCER
     Dosage: 1000 MG
     Route: 048
     Dates: start: 20120220, end: 20120304

REACTIONS (2)
  - ABDOMINAL PAIN [None]
  - ABDOMINAL DISTENSION [None]
